FAERS Safety Report 6592948-7 (Version None)
Quarter: 2010Q1

REPORT INFORMATION
  Report Type: 
  Country: None (occurrence: None)
  Receive Date: 20100222
  Receipt Date: 20100211
  Transmission Date: 20100710
  Serious: Yes (Death, Other)
  Sender: FDA-Public Use
  Company Number: TR-ELI_LILLY_AND_COMPANY-TR201002002888

PATIENT
  Age: 54 Year
  Sex: Male

DRUGS (6)
  1. HUMULIN N [Suspect]
     Indication: DIABETES MELLITUS
     Dosage: 22 IU, EACH MORNING
     Route: 058
     Dates: start: 20020211, end: 20090101
  2. HUMULIN N [Suspect]
     Dosage: 22 IU, EACH EVENING
     Route: 058
     Dates: start: 20020211, end: 20090101
  3. HUMULIN N [Suspect]
     Dosage: UNK, 3/D
     Route: 058
     Dates: start: 20090101
  4. COMBIVENT [Concomitant]
     Indication: ASTHMA
     Dosage: UNK, EVERY 3 HRS
     Route: 055
     Dates: start: 20020211
  5. DELIX [Concomitant]
     Indication: HYPERTENSION
     Dosage: UNK, UNK
     Route: 048
     Dates: start: 20020211
  6. MONOLONG [Concomitant]
     Dosage: 40 MG, UNK
     Route: 048
     Dates: start: 20020211

REACTIONS (2)
  - ASTHMA [None]
  - RESPIRATORY FAILURE [None]
